FAERS Safety Report 11868762 (Version 2)
Quarter: 2016Q1

REPORT INFORMATION
  Report Type: Spontaneous
  Country: US (occurrence: US)
  Receive Date: 20151225
  Receipt Date: 20160130
  Transmission Date: 20160526
  Serious: Yes (Other)
  Sender: FDA-Public Use
  Company Number: US-ACCORD-036549

PATIENT
  Age: 3 Year
  Sex: Female

DRUGS (2)
  1. TACROLIMUS. [Suspect]
     Active Substance: TACROLIMUS
     Indication: SMALL INTESTINE TRANSPLANT
     Dosage: TAPERED FROM 0.6 MG TWICE A DAY IN JANUARY TO 0.4 MG TWICE A DAY IN MAY
  2. SIROLIMUS. [Suspect]
     Active Substance: SIROLIMUS
     Indication: SMALL INTESTINE TRANSPLANT
     Dosage: TAPERED FROM 0.5 MG/DAY IN JANUARY TO 0.3 MG/DAY IN MAY

REACTIONS (2)
  - Epidermodysplasia verruciformis [Not Recovered/Not Resolved]
  - Papilloma viral infection [Unknown]
